FAERS Safety Report 6578811-6 (Version None)
Quarter: 2010Q1

REPORT INFORMATION
  Report Type: 
  Country: None (occurrence: None)
  Receive Date: 20100202
  Receipt Date: 20100118
  Transmission Date: 20100710
  Serious: Yes (Death)
  Sender: FDA-Public Use
  Company Number: 2009000983

PATIENT
  Age: 78 Year
  Sex: Male

DRUGS (4)
  1. TARCEVA [Suspect]
     Indication: PANCREATIC CARCINOMA METASTATIC
     Dosage: 9100 MG), ORAL
     Route: 048
     Dates: start: 20081021, end: 20090212
  2. GEMCITABINE [Suspect]
     Indication: PANCREATIC CARCINOMA METASTATIC
     Dosage: INTRAVENOUS
     Route: 042
  3. CAPTOPRIL [Concomitant]
  4. INSULIN (INSULIN) [Concomitant]

REACTIONS (12)
  - ASTHENIA [None]
  - DECREASED APPETITE [None]
  - HYPOPROTEINAEMIA [None]
  - INTERSTITIAL LUNG DISEASE [None]
  - MALIGNANT NEOPLASM PROGRESSION [None]
  - NO THERAPEUTIC RESPONSE [None]
  - OEDEMA PERIPHERAL [None]
  - PNEUMONIA CYTOMEGALOVIRAL [None]
  - PRESYNCOPE [None]
  - PULMONARY FIBROSIS [None]
  - RENAL FAILURE [None]
  - SEPSIS [None]
